FAERS Safety Report 9581038 (Version 1)
Quarter: 2013Q3

REPORT INFORMATION
  Report Type: Spontaneous
  Country: US (occurrence: None)
  Receive Date: 20130916
  Receipt Date: 20130916
  Transmission Date: 20140515
  Serious: Yes (Other)
  Sender: FDA-Public Use
  Company Number: JPI-P-025864

PATIENT
  Age: 53 Year
  Sex: Female
  Weight: 97.52 kg

DRUGS (2)
  1. XYREM [Suspect]
     Indication: CATAPLEXY
     Dosage: 4.5 GM (2.25 GM, 2 IN 1 D), ORAL
     Route: 048
     Dates: start: 20120919, end: 201210
  2. MULTIPLE UNSPECIFIED MEDICATIONS FOR DEPRESSION [Concomitant]

REACTIONS (4)
  - Depression [None]
  - Condition aggravated [None]
  - Crying [None]
  - Anxiety [None]
